FAERS Safety Report 20967914 (Version 1)
Quarter: 2022Q2

REPORT INFORMATION
  Report Type: Spontaneous
  Country: US (occurrence: None)
  Receive Date: 20220616
  Receipt Date: 20220616
  Transmission Date: 20220721
  Serious: Yes (Hospitalization)
  Sender: FDA-Public Use
  Company Number: None

PATIENT
  Age: 29 Year
  Sex: Female
  Weight: 68 kg

DRUGS (1)
  1. DISULFIRAM [Suspect]
     Active Substance: DISULFIRAM
     Indication: Alcohol use disorder
     Dosage: FREQUENCY : DAILY;?
     Route: 048
     Dates: start: 20220106, end: 20220315

REACTIONS (5)
  - Abdominal pain [None]
  - Jaundice [None]
  - Nausea [None]
  - Vomiting [None]
  - Liver function test increased [None]

NARRATIVE: CASE EVENT DATE: 20220315
